FAERS Safety Report 18224729 (Version 1)
Quarter: 2020Q3

REPORT INFORMATION
  Report Type: Spontaneous
  Country: US (occurrence: US)
  Receive Date: 20200902
  Receipt Date: 20200902
  Transmission Date: 20201103
  Serious: No
  Sender: FDA-Public Use
  Company Number: US-VELOXIS PHARMACEUTICALS-2019VELUS-000085

PATIENT

DRUGS (1)
  1. ENVARSUS XR [Suspect]
     Active Substance: TACROLIMUS
     Indication: TRANSPLANT REJECTION
     Route: 065

REACTIONS (2)
  - Drug level below therapeutic [Unknown]
  - Drug level above therapeutic [Unknown]
